FAERS Safety Report 23642750 (Version 1)
Quarter: 2024Q1

REPORT INFORMATION
  Report Type: Spontaneous
  Country: FI (occurrence: None)
  Receive Date: 20240318
  Receipt Date: 20240318
  Transmission Date: 20240410
  Serious: Yes (Life-Threatening)
  Sender: FDA-Public Use
  Company Number: 2024A064093

PATIENT
  Age: 18 Year
  Sex: Male

DRUGS (8)
  1. QUETIAPINE FUMARATE [Suspect]
     Active Substance: QUETIAPINE FUMARATE
     Indication: Anxiety
     Dosage: IF NECESSARY 25 MG (MAX 75 MG/DAY) / AS NECESSERY 25 MG (MAX 75 MG/DAY)
     Route: 048
     Dates: start: 20231013
  2. QUETIAPINE FUMARATE [Suspect]
     Active Substance: QUETIAPINE FUMARATE
     Indication: Insomnia
     Dosage: IF NECESSARY 25 MG (MAX 75 MG/DAY) / AS NECESSERY 25 MG (MAX 75 MG/DAY)
     Route: 048
     Dates: start: 20231013
  3. QUETIAPINE FUMARATE [Suspect]
     Active Substance: QUETIAPINE FUMARATE
     Indication: Anxiety
     Dosage: 2,5 - 6 G
     Dates: start: 20240304
  4. QUETIAPINE FUMARATE [Suspect]
     Active Substance: QUETIAPINE FUMARATE
     Indication: Insomnia
     Dosage: 2,5 - 6 G
     Dates: start: 20240304
  5. PROPRANOLOL HYDROCHLORIDE [Suspect]
     Active Substance: PROPRANOLOL HYDROCHLORIDE
     Indication: Anxiety
     Dosage: WHEN TRAVELING 1-2 TABLETS 1-3 TIMES A DAY / IF NECESSARY, 1-2 TABLETS 1-3 TIMES A DAY 1-2 TABLET...
     Route: 048
  6. PROPRANOLOL HYDROCHLORIDE [Suspect]
     Active Substance: PROPRANOLOL HYDROCHLORIDE
     Indication: Anxiety
     Dosage: 200 PCS. 10 MG
     Dates: start: 20231013
  7. OLANZAPINE [Concomitant]
     Active Substance: OLANZAPINE
     Indication: Affective disorder
     Dosage: 15 MG X 1
     Route: 048
     Dates: start: 20231017
  8. VENLAFAXINE [Concomitant]
     Active Substance: VENLAFAXINE HYDROCHLORIDE
     Indication: Affective disorder
     Dosage: PROLONGED-RELEASE CAPSULE, HARD
     Route: 048
     Dates: start: 20231017

REACTIONS (5)
  - Suicide attempt [Recovering/Resolving]
  - Loss of consciousness [Recovering/Resolving]
  - Blood pressure decreased [Recovering/Resolving]
  - Cardiac arrest [Recovering/Resolving]
  - Intentional overdose [Recovering/Resolving]

NARRATIVE: CASE EVENT DATE: 20240304
